FAERS Safety Report 23235438 (Version 3)
Quarter: 2023Q4

REPORT INFORMATION
  Report Type: Spontaneous
  Country: US (occurrence: US)
  Receive Date: 20231128
  Receipt Date: 20231211
  Transmission Date: 20240110
  Serious: Yes (Other)
  Sender: FDA-Public Use
  Company Number: US-PFIZER INC-PV202300191389

PATIENT
  Age: 73 Year
  Sex: Female

DRUGS (4)
  1. VANCOMYCIN HYDROCHLORIDE [Suspect]
     Active Substance: VANCOMYCIN HYDROCHLORIDE
     Indication: Staphylococcal infection
     Dosage: UNK
     Route: 042
  2. VANCOMYCIN HYDROCHLORIDE [Suspect]
     Active Substance: VANCOMYCIN HYDROCHLORIDE
     Indication: Osteomyelitis
  3. PREDNISONE [Suspect]
     Active Substance: PREDNISONE
     Indication: Osteomyelitis
     Dosage: HIGH-DOSE
  4. PREDNISONE [Suspect]
     Active Substance: PREDNISONE
     Indication: Staphylococcal infection

REACTIONS (7)
  - Drug reaction with eosinophilia and systemic symptoms [Recovering/Resolving]
  - Pneumonitis [Recovering/Resolving]
  - Tubulointerstitial nephritis [Recovering/Resolving]
  - Acute kidney injury [Recovering/Resolving]
  - Respiratory failure [Recovering/Resolving]
  - Pleural effusion [Recovering/Resolving]
  - Hepatic enzyme increased [Recovering/Resolving]
